FAERS Safety Report 19571905 (Version 2)
Quarter: 2021Q3

REPORT INFORMATION
  Report Type: Report from Study
  Country: None (occurrence: US)
  Receive Date: 20210715
  Receipt Date: 20210723
  Transmission Date: 20211014
  Serious: Yes (Hospitalization, Other)
  Sender: FDA-Public Use
  Company Number: US-ABBVIE-21K-163-3979903-00

PATIENT
  Age: 73 Year
  Sex: Male

DRUGS (4)
  1. DUOPA [Suspect]
     Active Substance: CARBIDOPA\LEVODOPA
     Indication: PARKINSON^S DISEASE
     Route: 050
     Dates: start: 201701
  2. DUOPA [Suspect]
     Active Substance: CARBIDOPA\LEVODOPA
     Route: 050
     Dates: start: 20180116
  3. COVID?19 VACCINE [Concomitant]
     Indication: COVID-19 IMMUNISATION
     Dosage: MFR ? MODERNA
     Route: 030
     Dates: start: 20201123, end: 20201123
  4. COVID?19 VACCINE [Concomitant]
     Dosage: MFR ? MODERNA
     Route: 030
     Dates: start: 20201223, end: 20201223

REACTIONS (19)
  - Emotional distress [Unknown]
  - Blood pressure abnormal [Recovered/Resolved]
  - Loss of consciousness [Recovered/Resolved]
  - Blood pressure decreased [Recovered/Resolved]
  - Loss of consciousness [Recovered/Resolved]
  - Urinary tract infection [Recovered/Resolved]
  - Confusional state [Recovered/Resolved]
  - Loss of consciousness [Recovered/Resolved]
  - Dementia [Unknown]
  - Agitation [Unknown]
  - Blood pressure decreased [Recovered/Resolved]
  - Emotional distress [Recovered/Resolved]
  - Dementia [Not Recovered/Not Resolved]
  - Hospitalisation [Not Recovered/Not Resolved]
  - Loss of consciousness [Recovered/Resolved]
  - Agitation [Recovered/Resolved]
  - Blood pressure decreased [Recovered/Resolved]
  - Urinary tract infection [Recovered/Resolved]
  - Urinary tract infection [Recovered/Resolved]

NARRATIVE: CASE EVENT DATE: 2021
